FAERS Safety Report 19020355 (Version 2)
Quarter: 2021Q4

REPORT INFORMATION
  Report Type: Report from Study
  Country: GR (occurrence: GR)
  Receive Date: 20210317
  Receipt Date: 20211201
  Transmission Date: 20220303
  Serious: Yes (Other)
  Sender: FDA-Public Use
  Company Number: GR-JNJFOC-20210321138

PATIENT

DRUGS (4)
  1. DARZALEX [Suspect]
     Active Substance: DARATUMUMAB
     Indication: Plasma cell myeloma
     Dosage: FOR CYCLES 1-2 EVERY 2 WEEKS FOR CYCLES 3-6 AND EVERY 4 WEEKS THERE AFTER
     Route: 042
  2. CARFILZOMIB [Suspect]
     Active Substance: CARFILZOMIB
     Indication: Plasma cell myeloma
     Dosage: ON DAY-1 (C1D1) AND 2 (C1D2) OF CYCLE 1
     Route: 065
  3. CARFILZOMIB [Suspect]
     Active Substance: CARFILZOMIB
     Dosage: AFTER THE FIRST AND SECOND DAY OF CYCLE-1
     Route: 065
  4. DEXAMETHASONE [Suspect]
     Active Substance: DEXAMETHASONE
     Indication: Plasma cell myeloma
     Dosage: ON DAYS-1,8 AND 15 OF 28 -DAY CYCLES
     Route: 065

REACTIONS (3)
  - Hypertension [Unknown]
  - Acute coronary syndrome [Unknown]
  - Cardiac failure [Unknown]
